FAERS Safety Report 16674450 (Version 6)
Quarter: 2019Q3

REPORT INFORMATION
  Report Type: Report from Study
  Country: CO (occurrence: CO)
  Receive Date: 20190806
  Receipt Date: 20190829
  Transmission Date: 20191004
  Serious: Yes (Death, Life-Threatening, Hospitalization, Other)
  Sender: FDA-Public Use
  Company Number: CO-JNJFOC-20190737691

PATIENT
  Age: 68 Year
  Sex: Male
  Weight: 76 kg

DRUGS (5)
  1. IBRUTINIB [Suspect]
     Active Substance: IBRUTINIB
     Indication: MANTLE CELL LYMPHOMA
     Dosage: MEDICATION KIT NUMBER: 26190, 26191, 26199, 26200
     Route: 048
     Dates: start: 20180124, end: 20190716
  2. RINGERS LACTAT HARTMANN SOLUTION [Concomitant]
     Route: 042
  3. ACETAMINOPHEN. [Concomitant]
     Active Substance: ACETAMINOPHEN
     Route: 048
  4. HYDROMORPHONE [Concomitant]
     Active Substance: HYDROMORPHONE
     Dosage: 0.2 MG/ML X 3 ML SOLUTION FOR INJECTION, 0.3 MG EVERY 6 HOURS PLUS RESCUES OF 0.3 MG, MAXIMUM 6 A DA
     Route: 042
  5. TRAZODONE [Concomitant]
     Active Substance: TRAZODONE HYDROCHLORIDE
     Route: 048

REACTIONS (4)
  - Otitis media [Fatal]
  - Upper gastrointestinal haemorrhage [Not Recovered/Not Resolved]
  - Febrile neutropenia [Fatal]
  - Anaemia [Fatal]

NARRATIVE: CASE EVENT DATE: 20190716
